FAERS Safety Report 5259543-3 (Version None)
Quarter: 2007Q1

REPORT INFORMATION
  Report Type: 
  Country: None (occurrence: None)
  Receive Date: 20070306
  Receipt Date: 20070222
  Transmission Date: 20070707
  Serious: Yes (Hospitalization)
  Sender: FDA-Public Use
  Company Number: 236108

PATIENT
  Age: 58 Year
  Sex: Male
  Weight: 88.9 kg

DRUGS (10)
  1. AVASTIN [Suspect]
     Indication: GLIOBLASTOMA MULTIFORME
     Dosage: 795 MG, DAYS 1+22, INTRAVENOUS
     Route: 042
     Dates: start: 20051116
  2. IRINOTECAN HCL [Suspect]
     Indication: GLIOBLASTOMA MULTIFORME
     Dosage: 180 MG, D1, 8, 22, 29, INTRAVENOUS
     Route: 042
     Dates: start: 20051116
  3. CELEXA [Concomitant]
  4. RITALIN [Concomitant]
  5. KEPPRA [Concomitant]
  6. PREVACID [Concomitant]
  7. LANTUS [Concomitant]
  8. INSULIN (INSULIN) [Concomitant]
  9. ATIVAN [Concomitant]
  10. MARINOL [Concomitant]

REACTIONS (7)
  - DIABETIC KETOACIDOSIS [None]
  - FATIGUE [None]
  - HAEMATEMESIS [None]
  - HYPERTENSION [None]
  - MALAISE [None]
  - NAUSEA [None]
  - VOMITING [None]
